FAERS Safety Report 6575446-6 (Version None)
Quarter: 2010Q1

REPORT INFORMATION
  Report Type: 
  Country: None (occurrence: None)
  Receive Date: 20100209
  Receipt Date: 20100202
  Transmission Date: 20100710
  Serious: Yes (Hospitalization, Other)
  Sender: FDA-Public Use
  Company Number: US-JNJFOC-20100201406

PATIENT
  Sex: Female
  Weight: 66.3 kg

DRUGS (4)
  1. LEVOFLOXACIN [Suspect]
     Indication: INFECTION
     Route: 065
  2. ENBREL [Suspect]
     Indication: RHEUMATOID ARTHRITIS
     Route: 058
  3. AZATHIOPRINE [Concomitant]
     Route: 065
  4. FILGRASTIM [Concomitant]
     Route: 065

REACTIONS (4)
  - BACTERIAL TEST POSITIVE [None]
  - CONVULSION [None]
  - LEUKOPENIA [None]
  - NEUTROPENIA [None]
